FAERS Safety Report 6264884-7 (Version None)
Quarter: 2009Q3

REPORT INFORMATION
  Report Type: 
  Country: None (occurrence: None)
  Receive Date: 20090713
  Receipt Date: 20090630
  Transmission Date: 20100115
  Serious: Yes (Hospitalization)
  Sender: FDA-Public Use
  Company Number: FR-BIOGENIDEC-2009BI011683

PATIENT
  Age: 57 Year
  Sex: Female

DRUGS (11)
  1. TYSABRI [Suspect]
     Indication: MULTIPLE SCLEROSIS
     Route: 042
     Dates: start: 20071217, end: 20080403
  2. LEVOTHYROX [Concomitant]
  3. MOTILIUM [Concomitant]
  4. INIPOMP [Concomitant]
  5. EFFEXOR XR [Concomitant]
     Indication: ANTIDEPRESSANT THERAPY
  6. XANAX [Concomitant]
     Indication: ANXIOLYTIC THERAPY
  7. MUSCLE RELAXANTS [Concomitant]
  8. DUFALAC [Concomitant]
  9. CACIT D3 [Concomitant]
  10. LOVENOX [Concomitant]
  11. LANSOYL [Concomitant]

REACTIONS (1)
  - NEUROMYELITIS OPTICA [None]
